FAERS Safety Report 7475691-1 (Version None)
Quarter: 2011Q2

REPORT INFORMATION
  Report Type: 
  Country: None (occurrence: None)
  Receive Date: 20110512
  Receipt Date: 20110509
  Transmission Date: 20111010
  Serious: Yes (Hospitalization)
  Sender: FDA-Public Use
  Company Number: US-ELI_LILLY_AND_COMPANY-US201105002221

PATIENT
  Age: 20 Year
  Sex: Male

DRUGS (2)
  1. HUMALOG [Suspect]
     Indication: DIABETES MELLITUS
     Dosage: UNK, PRN
  2. HUMALOG [Suspect]
     Dosage: UNK, PRN

REACTIONS (3)
  - DRUG INEFFECTIVE [None]
  - CELLULITIS [None]
  - BLOOD GLUCOSE INCREASED [None]
